FAERS Safety Report 9423630 (Version 1)
Quarter: 2013Q3

REPORT INFORMATION
  Report Type: Spontaneous
  Country: US (occurrence: US)
  Receive Date: 20130726
  Receipt Date: 20130726
  Transmission Date: 20140515
  Serious: No
  Sender: FDA-Public Use
  Company Number: US-009507513-1307USA004336

PATIENT
  Age: 59 Year
  Sex: Female
  Weight: 48.73 kg

DRUGS (7)
  1. VICTRELIS [Suspect]
     Indication: CHRONIC HEPATITIS C
     Dosage: UNK
     Route: 065
     Dates: start: 20130207, end: 20130314
  2. PEGASYS [Suspect]
     Indication: CHRONIC HEPATITIS C
     Dosage: 180 MICROGRAM, (1 IN 1 WK)
     Route: 065
     Dates: start: 20130110
  3. PEGASYS [Suspect]
     Dosage: 135 MICROGRAM
     Route: 065
     Dates: start: 20130204
  4. REBETOL [Suspect]
     Indication: CHRONIC HEPATITIS C
     Dosage: 1000 MG (1000 MG, 1 IN 1 D)
     Route: 065
     Dates: start: 20130110
  5. REBETOL [Suspect]
     Dosage: 800 MG
     Route: 065
     Dates: start: 20130204
  6. PRILOSEC [Concomitant]
     Indication: GASTROOESOPHAGEAL REFLUX DISEASE
  7. NEURONTIN [Concomitant]
     Indication: NEUROPATHY PERIPHERAL

REACTIONS (28)
  - Headache [Recovered/Resolved]
  - Pain [Recovered/Resolved]
  - Musculoskeletal stiffness [Unknown]
  - Nasal congestion [Unknown]
  - Respiratory tract congestion [Unknown]
  - Alopecia [Unknown]
  - White blood cell count decreased [Unknown]
  - Red blood cell count decreased [Unknown]
  - Fatigue [Not Recovered/Not Resolved]
  - Urinary tract infection [Unknown]
  - Candida infection [Unknown]
  - Arthralgia [Unknown]
  - Neuropathy peripheral [Unknown]
  - Rash [Unknown]
  - Vision blurred [Unknown]
  - Eye discharge [Unknown]
  - Irritability [Unknown]
  - Skin exfoliation [Unknown]
  - Malaise [Unknown]
  - Anaemia [Unknown]
  - Haemoglobin decreased [Unknown]
  - Pneumonia [Unknown]
  - Oropharyngeal pain [Unknown]
  - Candida infection [Unknown]
  - Dysgeusia [Unknown]
  - Weight decreased [Unknown]
  - Myalgia [Unknown]
  - Lower respiratory tract infection [Unknown]
